FAERS Safety Report 16314018 (Version 18)
Quarter: 2023Q4

REPORT INFORMATION
  Report Type: Spontaneous
  Country: US (occurrence: US)
  Receive Date: 20190515
  Receipt Date: 20231128
  Transmission Date: 20240109
  Serious: Yes (Other)
  Sender: FDA-Public Use
  Company Number: US-PFIZER INC-2019203171

PATIENT
  Age: 55 Year
  Sex: Female
  Weight: 69.85 kg

DRUGS (13)
  1. PREMARIN [Suspect]
     Active Substance: ESTROGENS, CONJUGATED
     Indication: Hot flush
     Dosage: 0.625 MG, UNK
     Route: 048
     Dates: start: 1990
  2. PREMARIN [Suspect]
     Active Substance: ESTROGENS, CONJUGATED
     Indication: Menopause
     Dosage: 0.325 MG, 1X/DAY
     Route: 048
  3. PREMARIN [Suspect]
     Active Substance: ESTROGENS, CONJUGATED
     Indication: Gynaecological examination
     Dosage: 0.3 MG, 1X/DAY
     Route: 048
     Dates: start: 1998
  4. PREMARIN [Suspect]
     Active Substance: ESTROGENS, CONJUGATED
     Dosage: 0.3 MG
     Dates: start: 2015
  5. CEFIXIME [Concomitant]
     Active Substance: CEFIXIME
     Indication: Muscle spasms
     Dosage: 10 MG, 3X/DAY
  6. GABAPENTIN [Concomitant]
     Active Substance: GABAPENTIN
     Indication: Nerve injury
     Dosage: 300 MG, 3X/DAY
     Route: 048
     Dates: start: 2014
  7. GABAPENTIN [Concomitant]
     Active Substance: GABAPENTIN
     Dosage: 2 DF, 1X/DAY
  8. LISINOPRIL [Concomitant]
     Active Substance: LISINOPRIL
     Dosage: 20 MG, 1X/DAY (20MG, ONE TIME A DAY)
  9. OMEPRAZOLE [Concomitant]
     Active Substance: OMEPRAZOLE
     Indication: Gastrointestinal disorder
     Dosage: 20 MG, 1X/DAY
     Route: 048
  10. OMEPRAZOLE [Concomitant]
     Active Substance: OMEPRAZOLE
     Indication: Gastrooesophageal reflux disease
     Dosage: 20 MG, 2X/DAY
  11. OMEPRAZOLE [Concomitant]
     Active Substance: OMEPRAZOLE
     Indication: Ulcer
  12. PRAVASTATIN [Concomitant]
     Active Substance: PRAVASTATIN
     Indication: Blood cholesterol abnormal
     Dosage: 20 MG, 1X/DAY
     Route: 048
     Dates: start: 2000
  13. VALACYCLOVIR HYDROCHLORIDE [Concomitant]
     Active Substance: VALACYCLOVIR HYDROCHLORIDE
     Indication: Oral herpes
     Dosage: 2 DF, 2X/DAY (2 TABLETS BY MOUTH TWICE A DAY)
     Route: 048

REACTIONS (13)
  - Hypertension [Unknown]
  - Cataract [Unknown]
  - Accident [Unknown]
  - Prosthesis user [Unknown]
  - Drug ineffective [Unknown]
  - Fluid retention [Unknown]
  - Pain [Unknown]
  - Discomfort [Unknown]
  - Fatigue [Unknown]
  - Asthenia [Unknown]
  - Poor quality sleep [Not Recovered/Not Resolved]
  - Hot flush [Unknown]
  - Intentional product use issue [Unknown]

NARRATIVE: CASE EVENT DATE: 20000101
